FAERS Safety Report 7620501-2 (Version None)
Quarter: 2011Q3

REPORT INFORMATION
  Report Type: 
  Country: None (occurrence: None)
  Receive Date: 20110719
  Receipt Date: 20110705
  Transmission Date: 20111222
  Serious: Yes (Hospitalization, Other)
  Sender: FDA-Public Use
  Company Number: DK-SANOFI-AVENTIS-2011SA044446

PATIENT
  Age: 76 Year
  Sex: Female
  Weight: 85 kg

DRUGS (8)
  1. DIGOXIN [Concomitant]
     Route: 065
  2. ENALAPRIL MALEATE [Concomitant]
     Route: 065
  3. VERAPAMIL [Concomitant]
     Route: 065
  4. DRONEDARONE HCL [Suspect]
     Indication: ATRIAL FIBRILLATION
     Route: 048
     Dates: start: 20101115
  5. AMARYL [Concomitant]
     Route: 065
  6. WARFARIN SODIUM [Concomitant]
     Route: 065
  7. FUROSEMIDE [Concomitant]
     Route: 065
  8. SIMVASTATIN [Concomitant]
     Route: 065

REACTIONS (2)
  - SYNCOPE [None]
  - FLUID IMBALANCE [None]
